FAERS Safety Report 4973725-7 (Version None)
Quarter: 2006Q2

REPORT INFORMATION
  Report Type: 
  Country: None (occurrence: None)
  Receive Date: 20060414
  Receipt Date: 20050913
  Transmission Date: 20061013
  Serious: Yes (Hospitalization)
  Sender: FDA-Public Use
  Company Number: US-MERCK-0509USA01806

PATIENT
  Age: 64 Year
  Sex: Female
  Weight: 58 kg

DRUGS (1)
  1. VIOXX [Suspect]
     Indication: ARTHRITIS
     Route: 048
     Dates: start: 20020301, end: 20030401

REACTIONS (12)
  - ACUTE MYOCARDIAL INFARCTION [None]
  - ANGINA UNSTABLE [None]
  - ARTERIOSCLEROSIS CORONARY ARTERY [None]
  - ASTHMA [None]
  - CATHETER SITE HAEMATOMA [None]
  - CHEST PAIN [None]
  - CORONARY ARTERY DISEASE [None]
  - LYMPHOCYTE MORPHOLOGY ABNORMAL [None]
  - OESOPHAGITIS [None]
  - ONYCHOGRYPHOSIS [None]
  - ONYCHOMYCOSIS [None]
  - THROMBOSIS [None]
